FAERS Safety Report 20346924 (Version 1)
Quarter: 2022Q1

REPORT INFORMATION
  Report Type: Spontaneous
  Country: US (occurrence: US)
  Receive Date: 20220118
  Receipt Date: 20220118
  Transmission Date: 20220423
  Serious: No
  Sender: FDA-Public Use
  Company Number: US-PFIZER INC-2021582807

PATIENT
  Age: 87 Year
  Sex: Female
  Weight: 40.82 kg

DRUGS (1)
  1. TOVIAZ [Suspect]
     Active Substance: FESOTERODINE FUMARATE
     Indication: Bladder disorder
     Dosage: 8 MG, 1X/DAY (EVERY MORNING)

REACTIONS (3)
  - Feeling abnormal [Unknown]
  - Bladder disorder [Unknown]
  - Visual impairment [Unknown]
